FAERS Safety Report 4605956-X (Version None)
Quarter: 2005Q1

REPORT INFORMATION
  Report Type: 
  Country: None (occurrence: None)
  Receive Date: 20050311
  Receipt Date: 20050307
  Transmission Date: 20050727
  Serious: Yes (Hospitalization)
  Sender: FDA-Public Use
  Company Number: 2005-03-0065

PATIENT
  Age: 46 Year
  Sex: Male

DRUGS (6)
  1. WELLBUTRIN [Suspect]
     Indication: DRUG USE FOR UNKNOWN INDICATION
     Route: 048
  2. PEG-INTRON [Suspect]
     Indication: HEPATITIS C
     Route: 058
     Dates: start: 20041105
  3. RIBAVIRIN [Suspect]
     Indication: HEPATITIS C
     Route: 048
     Dates: start: 20041105
  4. PAXIL CR [Concomitant]
     Dosage: 25MG SINGLE DOSE
     Route: 048
  5. LEVOXYL [Concomitant]
     Dosage: .05MG UNKNOWN
     Route: 048
  6. PREVACID [Concomitant]
     Dosage: 30MG UNKNOWN
     Route: 048

REACTIONS (3)
  - COLLAPSE OF LUNG [None]
  - CONVULSION [None]
  - PNEUMONIA [None]
